FAERS Safety Report 5782053-1 (Version None)
Quarter: 2008Q2

REPORT INFORMATION
  Report Type: 
  Country: None (occurrence: None)
  Receive Date: 20080623
  Receipt Date: 20080610
  Transmission Date: 20081010
  Serious: Yes (Other)
  Sender: FDA-Public Use
  Company Number: US-ELI_LILLY_AND_COMPANY-US200806002184

PATIENT
  Sex: Female

DRUGS (6)
  1. CYMBALTA [Suspect]
     Dosage: 20 MG, UNK
     Dates: start: 20070101
  2. ASPIRIN [Concomitant]
     Dosage: 81 MG, UNK
  3. ZYRTEC [Concomitant]
     Dosage: 0.5 D/F, DAILY (1/D)
  4. TYLENOL /USA/ [Concomitant]
  5. MOTRIN [Concomitant]
  6. ANTIBIOTICS [Concomitant]
     Dosage: UNK, UNK

REACTIONS (6)
  - CONJUNCTIVITIS [None]
  - EAR INFECTION [None]
  - HEADACHE [None]
  - HEPATIC ENZYME INCREASED [None]
  - HYPOACUSIS [None]
  - RED BLOOD CELL SEDIMENTATION RATE INCREASED [None]
